FAERS Safety Report 8402011-8 (Version None)
Quarter: 2012Q2

REPORT INFORMATION
  Report Type: 
  Country: None (occurrence: None)
  Receive Date: 20120529
  Receipt Date: 20120511
  Transmission Date: 20120825
  Serious: Yes (Other)
  Sender: FDA-Public Use
  Company Number: US-2012-10573

PATIENT
  Age: 41 Year
  Sex: Female

DRUGS (2)
  1. BUSULFAN [Suspect]
     Indication: BONE MARROW CONDITIONING REGIMEN
     Dosage: 16 MG/KG
  2. CYCLOPHOSPHAMIDE [Suspect]
     Indication: BONE MARROW CONDITIONING REGIMEN
     Dosage: 120 MG/KG

REACTIONS (7)
  - BLOOD LUTEINISING HORMONE INCREASED [None]
  - TOXICITY TO VARIOUS AGENTS [None]
  - UTERINE DISORDER [None]
  - OVARIAN FAILURE [None]
  - BLOOD FOLLICLE STIMULATING HORMONE INCREASED [None]
  - GRAFT VERSUS HOST DISEASE [None]
  - OVARIAN ATROPHY [None]
